FAERS Safety Report 5402219-X (Version None)
Quarter: 2007Q3

REPORT INFORMATION
  Report Type: 
  Country: None (occurrence: None)
  Receive Date: 20070727
  Receipt Date: 20070723
  Transmission Date: 20080115
  Serious: Yes (Other)
  Sender: FDA-Public Use
  Company Number: 2007BI007910

PATIENT
  Sex: Female

DRUGS (2)
  1. AVONEX [Suspect]
     Indication: DRUG USE FOR UNKNOWN INDICATION
     Dosage: 30 UG; IM
     Route: 030
     Dates: start: 20060921
  2. ENBREL [Concomitant]

REACTIONS (1)
  - HAEMORRHAGE INTRACRANIAL [None]
